FAERS Safety Report 18637979 (Version 1)
Quarter: 2020Q4

REPORT INFORMATION
  Report Type: Spontaneous
  Country: NL (occurrence: FR)
  Receive Date: 20201218
  Receipt Date: 20201218
  Transmission Date: 20210114
  Serious: Yes (Other)
  Sender: FDA-Public Use
  Company Number: FR-FRESENIUS KABI-FK202013342

PATIENT
  Age: 88 Year
  Sex: Female

DRUGS (1)
  1. POTASSIUM CHLORIDE (MANUFACTURER UNKNOWN) [Suspect]
     Active Substance: POTASSIUM CHLORIDE
     Indication: HYPOKALAEMIA
     Route: 041
     Dates: start: 20201110

REACTIONS (3)
  - Erythema [Recovered/Resolved]
  - Oedema [Recovered/Resolved]
  - Extravasation [Recovered/Resolved]

NARRATIVE: CASE EVENT DATE: 20201110
